FAERS Safety Report 18067913 (Version 1)
Quarter: 2020Q3

REPORT INFORMATION
  Report Type: Spontaneous
  Country: AT (occurrence: AT)
  Receive Date: 20200724
  Receipt Date: 20200724
  Transmission Date: 20201103
  Serious: Yes (Other)
  Sender: FDA-Public Use
  Company Number: AT-MALLINCKRODT-T202003664

PATIENT
  Sex: Female

DRUGS (1)
  1. UVADEX [Suspect]
     Active Substance: METHOXSALEN
     Indication: PRODUCT USED FOR UNKNOWN INDICATION
     Dosage: UNK, (EXTRACORPOREAL)
     Route: 050
     Dates: start: 202001

REACTIONS (2)
  - Thrombophlebitis superficial [Unknown]
  - Administration site thrombosis [Unknown]

NARRATIVE: CASE EVENT DATE: 2020
